FAERS Safety Report 5019559-9 (Version None)
Quarter: 2006Q2

REPORT INFORMATION
  Report Type: 
  Country: None (occurrence: None)
  Receive Date: 20060601
  Receipt Date: 20060526
  Transmission Date: 20061013
  Serious: Yes (Other)
  Sender: FDA-Public Use
  Company Number: 0600425US

PATIENT
  Age: 41 Year
  Sex: Female

DRUGS (3)
  1. BOTOX [Suspect]
     Indication: SKIN WRINKLING
     Dosage: 26 UNITS, SINGLE, INTRAMUSCULAR
     Route: 030
     Dates: start: 20060216, end: 20060216
  2. BIAXIN [Suspect]
     Indication: SINUSITIS
     Dosage: QD, ORAL
     Route: 048
  3. LEVAQUIN [Suspect]
     Indication: CYSTITIS
     Dosage: QD, ORAL
     Route: 048
     Dates: start: 20060510

REACTIONS (13)
  - ASTHENIA [None]
  - CHEST DISCOMFORT [None]
  - CYSTITIS [None]
  - ERYTHEMA [None]
  - FATIGUE [None]
  - HEART RATE INCREASED [None]
  - HYPERHIDROSIS [None]
  - LOSS OF CONSCIOUSNESS [None]
  - MUSCLE TIGHTNESS [None]
  - MUSCULAR WEAKNESS [None]
  - PALPITATIONS [None]
  - PARAESTHESIA [None]
  - WEIGHT DECREASED [None]
